FAERS Safety Report 8036812-5 (Version None)
Quarter: 2012Q1

REPORT INFORMATION
  Report Type: 
  Country: None (occurrence: None)
  Receive Date: 20120111
  Receipt Date: 20120106
  Transmission Date: 20120608
  Serious: Yes (Hospitalization)
  Sender: FDA-Public Use
  Company Number: US-ROCHE-1028258

PATIENT
  Age: 55 Year
  Sex: Female
  Weight: 49.55 kg

DRUGS (3)
  1. AVASTIN [Suspect]
     Indication: OVARIAN EPITHELIAL CANCER
     Dosage: CYCLE = 21 DAYS, 15 MG/KG IV OVER 30-90 MINUTES ON DAY 1 OF CYCLES 2+, LAST DOSE PRIOR TO SAE: 18/NO
     Route: 042
     Dates: start: 20110701
  2. AVASTIN [Suspect]
     Dosage: CYCLE 7, 15 MG/KG IV OVER 30-90 MINUTES ON DAY 1 OF CYCLES 2+
     Route: 042
     Dates: start: 20111118
  3. COUMADIN [Concomitant]

REACTIONS (6)
  - ABDOMINAL PAIN [None]
  - CONSTIPATION [None]
  - INTERNATIONAL NORMALISED RATIO INCREASED [None]
  - VOMITING [None]
  - DYSPNOEA [None]
  - NAUSEA [None]
